FAERS Safety Report 9225427 (Version 1)
Quarter: 2013Q2

REPORT INFORMATION
  Report Type: Spontaneous
  Country: US (occurrence: US)
  Receive Date: 20130411
  Receipt Date: 20130411
  Transmission Date: 20140414
  Serious: Yes (Other)
  Sender: FDA-Public Use
  Company Number: US-GLAXOSMITHKLINE-A1019197A

PATIENT
  Age: 29 Year
  Sex: Female

DRUGS (1)
  1. ALLI [Suspect]
     Indication: WEIGHT DECREASED
     Route: 065
     Dates: end: 2012

REACTIONS (6)
  - Vaginal haemorrhage [Recovered/Resolved]
  - Fatigue [Recovered/Resolved]
  - Bowel movement irregularity [Recovered/Resolved]
  - Malaise [Recovered/Resolved]
  - Feeling abnormal [Recovered/Resolved]
  - Drug ineffective [Unknown]
